FAERS Safety Report 5406573-4 (Version None)
Quarter: 2007Q3

REPORT INFORMATION
  Report Type: 
  Country: None (occurrence: None)
  Receive Date: 20070806
  Receipt Date: 20070726
  Transmission Date: 20080115
  Serious: Yes (Other)
  Sender: FDA-Public Use
  Company Number: US-PFIZER INC-2007062682

PATIENT
  Sex: Female
  Weight: 67.1 kg

DRUGS (11)
  1. NEURONTIN [Suspect]
     Indication: FIBROMYALGIA
  2. LYRICA [Suspect]
     Indication: FIBROMYALGIA
  3. PERCOCET [Concomitant]
  4. VOLTAREN [Concomitant]
  5. SOMA [Concomitant]
  6. ELAVIL [Concomitant]
  7. XANAX [Concomitant]
  8. PLAQUENIL [Concomitant]
  9. LASIX [Concomitant]
  10. DIOVAN [Concomitant]
  11. NEXIUM [Concomitant]

REACTIONS (2)
  - CARDIAC DISORDER [None]
  - MALAISE [None]
